FAERS Safety Report 11528346 (Version 1)
Quarter: 2015Q3

REPORT INFORMATION
  Report Type: Spontaneous
  Country: AU (occurrence: AU)
  Receive Date: 20150921
  Receipt Date: 20150921
  Transmission Date: 20151125
  Serious: Yes (Hospitalization)
  Sender: FDA-Public Use
  Company Number: AU-ROCHE-1635413

PATIENT

DRUGS (1)
  1. XENICAL [Suspect]
     Active Substance: ORLISTAT
     Indication: PRODUCT USED FOR UNKNOWN INDICATION
     Dosage: TAKING FOR OVER A WEEK
     Route: 065

REACTIONS (1)
  - Cholelithiasis [Unknown]

NARRATIVE: CASE EVENT DATE: 20150905
